FAERS Safety Report 19947586 (Version 15)
Quarter: 2022Q1

REPORT INFORMATION
  Report Type: Report from Study
  Country: KR (occurrence: None)
  Receive Date: 20211012
  Receipt Date: 20220304
  Transmission Date: 20220423
  Serious: Yes (Hospitalization)
  Sender: FDA-Public Use
  Company Number: KR-EISAI MEDICAL RESEARCH-EC-2021-101134

PATIENT
  Age: 64 Year
  Sex: Female
  Weight: 49.6 kg

DRUGS (15)
  1. LENVATINIB [Suspect]
     Active Substance: LENVATINIB
     Indication: Gastrooesophageal cancer
     Route: 048
     Dates: start: 20210917, end: 20211001
  2. LENVATINIB [Suspect]
     Active Substance: LENVATINIB
     Dosage: STARTING DOSE AT 6 MG, FLUCTUATED DOSAGE
     Route: 048
     Dates: start: 20211015
  3. PEMBROLIZUMAB [Suspect]
     Active Substance: PEMBROLIZUMAB
     Indication: Gastrooesophageal cancer
     Route: 041
     Dates: start: 20210917, end: 20210917
  4. PEMBROLIZUMAB [Suspect]
     Active Substance: PEMBROLIZUMAB
     Route: 041
     Dates: start: 20211105
  5. OXALIPLATIN [Suspect]
     Active Substance: OXALIPLATIN
     Indication: Gastrooesophageal cancer
     Route: 041
     Dates: start: 20210917, end: 20210917
  6. OXALIPLATIN [Suspect]
     Active Substance: OXALIPLATIN
     Route: 041
     Dates: start: 20211015, end: 20211126
  7. CAPECITABINE [Suspect]
     Active Substance: CAPECITABINE
     Indication: Gastrooesophageal cancer
     Dosage: 1000 MG/M2 BID Q3W
     Route: 048
     Dates: start: 20210917, end: 20210930
  8. CAPECITABINE [Suspect]
     Active Substance: CAPECITABINE
     Dosage: 1000 MG/M2 BID Q3W
     Route: 048
     Dates: start: 20211001, end: 20211001
  9. CAPECITABINE [Suspect]
     Active Substance: CAPECITABINE
     Route: 048
     Dates: start: 20211015, end: 20211210
  10. METOCLOPRAMIDE HYDROCHLORIDE [Concomitant]
     Active Substance: METOCLOPRAMIDE HYDROCHLORIDE
     Dates: start: 20210929, end: 20211125
  11. ENCOVER [Concomitant]
     Dates: start: 20210929, end: 20211217
  12. LANSOPRAZOLE [Concomitant]
     Active Substance: LANSOPRAZOLE
     Dates: start: 20210830
  13. GASTER [Concomitant]
     Active Substance: FAMOTIDINE
     Dates: start: 20210928, end: 20211003
  14. ALMAGEL-F [Concomitant]
     Dates: start: 20210830
  15. VITAMEDIN [BENFOTIAMINE;CYANOCOBALAMIN;PYRIDOXINE HYDROCHLORIDE] [Concomitant]
     Dates: start: 20210830, end: 20211007

REACTIONS (1)
  - Abdominal pain [Recovered/Resolved]

NARRATIVE: CASE EVENT DATE: 20211002
